FAERS Safety Report 18673408 (Version 5)
Quarter: 2021Q2

REPORT INFORMATION
  Report Type: Report from Study
  Country: US (occurrence: US)
  Receive Date: 20201229
  Receipt Date: 20210416
  Transmission Date: 20210717
  Serious: Yes (Other)
  Sender: FDA-Public Use
  Company Number: US-INSMED, INC.-US-INS-20-02413

PATIENT
  Sex: Male

DRUGS (2)
  1. ARIKAYCE [Suspect]
     Active Substance: AMIKACIN
     Indication: MYCOBACTERIUM AVIUM COMPLEX INFECTION
     Dosage: 590 MILLIGRAM, QD
     Route: 055
     Dates: start: 202011, end: 2020
  2. ARIKAYCE [Suspect]
     Active Substance: AMIKACIN
     Dosage: 590 MILLIGRAM, QD
     Route: 055
     Dates: start: 20210106, end: 20210409

REACTIONS (7)
  - Joint swelling [Unknown]
  - Abdominal discomfort [Recovering/Resolving]
  - Cardiac disorder [Unknown]
  - Therapy interrupted [Unknown]
  - Oxygen saturation decreased [Recovering/Resolving]
  - Deafness [Unknown]
  - Hypoacusis [Unknown]

NARRATIVE: CASE EVENT DATE: 2020
